FAERS Safety Report 20526163 (Version 1)
Quarter: 2022Q1

REPORT INFORMATION
  Report Type: Spontaneous
  Country: CA (occurrence: CA)
  Receive Date: 20220228
  Receipt Date: 20220228
  Transmission Date: 20220423
  Serious: Yes (Other)
  Sender: FDA-Public Use
  Company Number: CA-PFIZER INC-202101497610

PATIENT
  Age: 25 Year
  Sex: Male

DRUGS (2)
  1. XELJANZ [Suspect]
     Active Substance: TOFACITINIB CITRATE
     Indication: Colitis ulcerative
     Dosage: INDUCTION DOSE
     Route: 048
     Dates: start: 20190821
  2. XELJANZ [Suspect]
     Active Substance: TOFACITINIB CITRATE
     Dosage: MAINTENANCE DOSE
     Route: 048
     Dates: start: 201910

REACTIONS (1)
  - Crohn^s disease [Unknown]
